FAERS Safety Report 9206730 (Version 1)
Quarter: 2013Q2

REPORT INFORMATION
  Report Type: Spontaneous
  Country: US (occurrence: US)
  Receive Date: 20130403
  Receipt Date: 20130403
  Transmission Date: 20140414
  Serious: Yes (Hospitalization)
  Sender: FDA-Public Use
  Company Number: US-SANOFI-AVENTIS-2013SA034523

PATIENT
  Age: 69 Year
  Sex: Male

DRUGS (1)
  1. ALLEGRA [Suspect]
     Indication: HYPERSENSITIVITY
     Dosage: DOSE-ONE-HALF OF 180 MG SINCE 2 YEARS
     Route: 048
     Dates: end: 20130305

REACTIONS (3)
  - Encephalitis [Not Recovered/Not Resolved]
  - Dysphagia [Not Recovered/Not Resolved]
  - Wrong technique in drug usage process [Unknown]
